FAERS Safety Report 20054287 (Version 1)
Quarter: 2021Q4

REPORT INFORMATION
  Report Type: Spontaneous
  Country: US (occurrence: None)
  Receive Date: 20211110
  Receipt Date: 20211110
  Transmission Date: 20220303
  Serious: No
  Sender: FDA-Public Use
  Company Number: 2020SF63061

PATIENT
  Age: 23436 Day
  Sex: Male
  Weight: 86.2 kg

DRUGS (1)
  1. FASENRA [Suspect]
     Active Substance: BENRALIZUMAB
     Dosage: 30.0MG/ML UNKNOWN
     Route: 058
     Dates: start: 20200928, end: 20201130

REACTIONS (1)
  - Rash [Recovered/Resolved]

NARRATIVE: CASE EVENT DATE: 20201117
